FAERS Safety Report 21087456 (Version 2)
Quarter: 2024Q1

REPORT INFORMATION
  Report Type: Spontaneous
  Country: JP (occurrence: JP)
  Receive Date: 20220715
  Receipt Date: 20240314
  Transmission Date: 20240409
  Serious: Yes (Congenital Anomaly)
  Sender: FDA-Public Use
  Company Number: JP-BIOGEN-2022BI01138320

PATIENT
  Sex: Male
  Weight: 3.576 kg

DRUGS (1)
  1. TYSABRI [Suspect]
     Active Substance: NATALIZUMAB
     Indication: Multiple sclerosis
     Route: 050
     Dates: start: 20210521, end: 20211015

REACTIONS (2)
  - Ventricular septal defect [Unknown]
  - Foetal exposure during pregnancy [Unknown]
